FAERS Safety Report 5379547-X (Version None)
Quarter: 2007Q3

REPORT INFORMATION
  Report Type: 
  Country: None (occurrence: None)
  Receive Date: 20070703
  Receipt Date: 20070622
  Transmission Date: 20080115
  Serious: Yes (Other)
  Sender: FDA-Public Use
  Company Number: 157276USA

PATIENT
  Age: 39 Year
  Sex: Male
  Weight: 123.3784 kg

DRUGS (9)
  1. COPAXONE [Suspect]
     Indication: MULTIPLE SCLEROSIS
     Dosage: 20 MG (20 MG, 1 IN 1 D), SUBCUTANEOUS
     Route: 058
     Dates: start: 19981111
  2. AMANTADINE HCL [Concomitant]
  3. CETIRIZINE HYDROCHLORIDE [Concomitant]
  4. LAMOTRIGINE [Concomitant]
  5. FENOPROFEN CALCIUM [Concomitant]
  6. BACLOFEN [Concomitant]
  7. COMBIVENT [Concomitant]
  8. SALBUTAMOL [Concomitant]
  9. DOXYCYCLINE [Concomitant]

REACTIONS (10)
  - ACTINOMYCOTIC SKIN INFECTION [None]
  - BONE DISORDER [None]
  - BRONCHITIS CHRONIC [None]
  - JAW DISORDER [None]
  - LYMPHOMA [None]
  - PAIN IN JAW [None]
  - PURULENT DISCHARGE [None]
  - STAPHYLOCOCCAL INFECTION [None]
  - SWELLING [None]
  - TESTIS CANCER [None]
